FAERS Safety Report 6731126-5 (Version None)
Quarter: 2010Q2

REPORT INFORMATION
  Report Type: 
  Country: None (occurrence: None)
  Receive Date: 20100518
  Receipt Date: 20100414
  Transmission Date: 20101027
  Serious: Yes (Hospitalization)
  Sender: FDA-Public Use
  Company Number: JP-GENENTECH-301858

PATIENT
  Sex: Male
  Weight: 58 kg

DRUGS (1)
  1. XOLAIR [Suspect]
     Indication: ASTHMA
     Dosage: 225 UNK, Q2W
     Route: 058
     Dates: start: 20091120

REACTIONS (1)
  - PNEUMONIA [None]
